FAERS Safety Report 10581403 (Version 2)
Quarter: 2015Q2

REPORT INFORMATION
  Report Type: Report from Study
  Country: US (occurrence: US)
  Receive Date: 20141113
  Receipt Date: 20150519
  Transmission Date: 20150821
  Serious: No
  Sender: FDA-Public Use
  Company Number: US-AMGEN INC.-USASL2014086896

PATIENT
  Age: 49 Year
  Sex: Female

DRUGS (1)
  1. ENBREL [Suspect]
     Active Substance: ETANERCEPT
     Indication: RHEUMATOID ARTHRITIS
     Dosage: 50 MG, QWK
     Route: 065
     Dates: start: 20140910, end: 201411

REACTIONS (12)
  - Alanine aminotransferase abnormal [Not Recovered/Not Resolved]
  - Irritable bowel syndrome [Unknown]
  - Abdominal distension [Recovered/Resolved]
  - Blood urea abnormal [Not Recovered/Not Resolved]
  - Nasopharyngitis [Recovered/Resolved]
  - Costochondritis [Unknown]
  - Hepatic enzyme increased [Recovered/Resolved]
  - Sinus disorder [Recovered/Resolved]
  - Abdominal pain upper [Unknown]
  - Induration [Unknown]
  - Osteitis [Not Recovered/Not Resolved]
  - Aspartate aminotransferase abnormal [Not Recovered/Not Resolved]

NARRATIVE: CASE EVENT DATE: 201410
